FAERS Safety Report 7301113-7 (Version None)
Quarter: 2011Q1

REPORT INFORMATION
  Report Type: 
  Country: None (occurrence: None)
  Receive Date: 20110218
  Receipt Date: 20110216
  Transmission Date: 20110831
  Serious: Yes (Disabling)
  Sender: FDA-Public Use
  Company Number: US-PERRIGO-11US001001

PATIENT
  Sex: Male
  Weight: 104.31 kg

DRUGS (1)
  1. ZINC COLD REMEDY TAB 807 [Suspect]
     Indication: NASOPHARYNGITIS
     Dosage: 1 TABLET, SINGLE
     Route: 048
     Dates: start: 20110201, end: 20110201

REACTIONS (2)
  - ANOSMIA [None]
  - AGEUSIA [None]
